FAERS Safety Report 25548418 (Version 1)
Quarter: 2025Q3

REPORT INFORMATION
  Report Type: Report from Study
  Country: US (occurrence: US)
  Receive Date: 20250714
  Receipt Date: 20250714
  Transmission Date: 20251021
  Serious: Yes (Other)
  Sender: BAYER HEALTHCARE PHARMACEUTICALS INC.
  Company Number: US-BAYER-2025A089335

PATIENT
  Age: 83 Year
  Sex: Female

DRUGS (1)
  1. KERENDIA [Suspect]
     Active Substance: FINERENONE
     Indication: Chronic kidney disease
     Dosage: 10 MG, QD
     Route: 048
     Dates: start: 20250213

REACTIONS (3)
  - Laboratory test [Not Recovered/Not Resolved]
  - Product prescribing error [None]
  - Therapy cessation [Unknown]

NARRATIVE: CASE EVENT DATE: 20250703
